FAERS Safety Report 15592860 (Version 3)
Quarter: 2020Q3

REPORT INFORMATION
  Report Type: Report from Study
  Country: DE (occurrence: DE)
  Receive Date: 20181106
  Receipt Date: 20200709
  Transmission Date: 20201102
  Serious: Yes (Hospitalization, Congenital Anomaly, Other)
  Sender: FDA-Public Use
  Company Number: DE-MYLANLABS-2018M1082463

PATIENT
  Age: 62 Year
  Sex: Female

DRUGS (8)
  1. METHOTREXATE. [Suspect]
     Active Substance: METHOTREXATE
     Dosage: 7.5 MILLIGRAM, QW
     Route: 065
     Dates: end: 202004
  2. ABATACEPT [Suspect]
     Active Substance: ABATACEPT
     Dosage: 125 MILLIGRAM, QW
     Route: 058
     Dates: end: 20200424
  3. ABATACEPT [Suspect]
     Active Substance: ABATACEPT
     Dosage: 125 MILLIGRAM, QW
     Route: 058
     Dates: end: 20190415
  4. METHOTREXATE. [Suspect]
     Active Substance: METHOTREXATE
     Indication: RHEUMATOID ARTHRITIS
     Dosage: UNK
     Dates: start: 201904
  5. METHOTREXATE. [Suspect]
     Active Substance: METHOTREXATE
     Dosage: 20 MG, QW,(20 MG, QWK)
     Route: 065
     Dates: end: 201610
  6. ABATACEPT [Suspect]
     Active Substance: ABATACEPT
     Indication: RHEUMATOID ARTHRITIS
     Dosage: 125 MG, QW,(125 MG, QWK)
     Route: 058
     Dates: end: 20161014
  7. ABATACEPT [Suspect]
     Active Substance: ABATACEPT
     Dosage: UNK
     Dates: start: 20190426
  8. METHOTREXATE. [Suspect]
     Active Substance: METHOTREXATE
     Dosage: 7.5 MILLIGRAM, QW
     Dates: start: 201903

REACTIONS (12)
  - Bladder prolapse [Not Recovered/Not Resolved]
  - Carpal tunnel syndrome [Unknown]
  - Influenza like illness [Unknown]
  - Bladder disorder [Not Recovered/Not Resolved]
  - Pelvic abscess [Recovered/Resolved]
  - Burns second degree [Unknown]
  - Nasopharyngitis [Unknown]
  - Rectocele [Not Recovered/Not Resolved]
  - Uterine prolapse [Unknown]
  - Anaemia [Not Recovered/Not Resolved]
  - Vaginal prolapse [Not Recovered/Not Resolved]
  - Skin ulcer [Unknown]

NARRATIVE: CASE EVENT DATE: 201308
